FAERS Safety Report 21608621 (Version 3)
Quarter: 2022Q4

REPORT INFORMATION
  Report Type: Spontaneous
  Country: US (occurrence: US)
  Receive Date: 20221117
  Receipt Date: 20221128
  Transmission Date: 20230113
  Serious: No
  Sender: FDA-Public Use
  Company Number: US-PFIZER INC-202201301255

PATIENT
  Age: 53 Year
  Sex: Female

DRUGS (2)
  1. DEPO-ESTRADIOL [Suspect]
     Active Substance: ESTRADIOL CYPIONATE
     Indication: Hormone replacement therapy
     Dosage: UNK UNK, MONTHLY
  2. ESTRADIOL CYPIONATE [Suspect]
     Active Substance: ESTRADIOL CYPIONATE
     Dosage: 1 ML, MONTHLY (INJECTION IN MY MUSCLE TISSUE ON MY BACK)

REACTIONS (3)
  - Hormone level abnormal [Unknown]
  - Product dose omission issue [Unknown]
  - Product supply issue [Unknown]
